FAERS Safety Report 21883141 (Version 1)
Quarter: 2023Q1

REPORT INFORMATION
  Report Type: Spontaneous
  Country: US (occurrence: None)
  Receive Date: 20230117
  Receipt Date: 20230117
  Transmission Date: 20230417
  Serious: No
  Sender: FDA-Public Use
  Company Number: None

PATIENT
  Age: 49 Year
  Sex: Female

DRUGS (1)
  1. TALTZ [Suspect]
     Active Substance: IXEKIZUMAB
     Indication: Hidradenitis
     Dosage: FREQUENCY : AS DIRECTED;?
     Route: 058
     Dates: start: 202108

REACTIONS (1)
  - Spinal fusion surgery [None]
